FAERS Safety Report 17625576 (Version 2)
Quarter: 2020Q2

REPORT INFORMATION
  Report Type: Spontaneous
  Country: US (occurrence: US)
  Receive Date: 20200404
  Receipt Date: 20200424
  Transmission Date: 20200713
  Serious: Yes (Death)
  Sender: FDA-Public Use
  Company Number: US-HIKMA PHARMACEUTICALS USA INC.-US-H14001-20-01625

PATIENT
  Sex: Male

DRUGS (19)
  1. RANITIDINE. [Concomitant]
     Active Substance: RANITIDINE
     Indication: PRODUCT USED FOR UNKNOWN INDICATION
     Route: 048
     Dates: start: 20190110
  2. DOCUSATE SODIUM ORAL LIQUID [Concomitant]
     Indication: PRODUCT USED FOR UNKNOWN INDICATION
     Route: 048
     Dates: start: 20190212
  3. ALBUTEROL. [Concomitant]
     Active Substance: ALBUTEROL
     Indication: PRODUCT USED FOR UNKNOWN INDICATION
     Dosage: 2.5MG/0.5 ML
     Dates: start: 20190205
  4. SENNA [Concomitant]
     Active Substance: SENNA LEAF\SENNOSIDES\SENNOSIDES A AND B
     Indication: PRODUCT USED FOR UNKNOWN INDICATION
     Route: 048
     Dates: start: 20190212
  5. KETAMINE + DEXTROSE 5% IN WATER [Concomitant]
     Indication: PRODUCT USED FOR UNKNOWN INDICATION
     Dosage: 1.63 ML/HR (0.5 MG/KG/HR) 0.50 MG/KG/HR
     Route: 042
     Dates: start: 20200215
  6. MULTIVITAMIN WITH IRON [Concomitant]
     Active Substance: IRON\VITAMINS
     Indication: PRODUCT USED FOR UNKNOWN INDICATION
     Dates: start: 20181102
  7. SODIUM CHLORIDE. [Concomitant]
     Active Substance: SODIUM CHLORIDE
     Indication: PRODUCT USED FOR UNKNOWN INDICATION
     Dates: start: 20190205
  8. SODIUM CHLORIDE. [Concomitant]
     Active Substance: SODIUM CHLORIDE
     Indication: PRODUCT USED FOR UNKNOWN INDICATION
     Route: 042
     Dates: start: 20190208
  9. FLUTICASONE. [Concomitant]
     Active Substance: FLUTICASONE
     Indication: PRODUCT USED FOR UNKNOWN INDICATION
     Dosage: 2 PUFF
     Dates: start: 20190109
  10. FUROSEMIDE. [Concomitant]
     Active Substance: FUROSEMIDE
     Indication: PRODUCT USED FOR UNKNOWN INDICATION
     Route: 042
     Dates: start: 20190214
  11. GABAPENTIN 250MG/5ML ORAL SOLUTION [Concomitant]
     Indication: PRODUCT USED FOR UNKNOWN INDICATION
     Route: 048
     Dates: start: 20190212
  12. POLYETHYLENE GLIYCOL [Concomitant]
     Indication: PRODUCT USED FOR UNKNOWN INDICATION
     Dosage: 4.24 GM
     Route: 065
     Dates: start: 20190209
  13. EPINEPHRINE + SODIUM CHLORIDE 0.09% [Concomitant]
     Indication: PRODUCT USED FOR UNKNOWN INDICATION
     Dosage: 0.49 ML/HR (0.02 MCG/KG/MIN) 0.01 MCG/KG/MIN
     Route: 042
     Dates: start: 20190214
  14. MIDAZOLAM. [Concomitant]
     Active Substance: MIDAZOLAM
     Indication: PRODUCT USED FOR UNKNOWN INDICATION
     Dosage: 0.98 ML/HR (0.3 MG/KG/HR) 0.30 MG/KG/HR
     Route: 042
     Dates: start: 20190213
  15. MILRINONE PREMIX + DEXTROSE 5% IN WATER PREMIX [Concomitant]
     Indication: PRODUCT USED FOR UNKNOWN INDICATION
     Dosage: 0.29 ML/HR (0.15 MCG/KG/MIN) 0.15 MCG/KG/MIN
     Route: 042
     Dates: start: 20190213
  16. BOSENTAN. [Suspect]
     Active Substance: BOSENTAN
     Indication: PRODUCT USED FOR UNKNOWN INDICATION
     Dates: start: 20190205, end: 20190214
  17. HEPARIN FLUSH [Concomitant]
     Active Substance: HEPARIN SODIUM
     Indication: PRODUCT USED FOR UNKNOWN INDICATION
     Route: 042
     Dates: start: 20190212
  18. LORAZEPAM. [Concomitant]
     Active Substance: LORAZEPAM
     Indication: PRODUCT USED FOR UNKNOWN INDICATION
     Route: 065
     Dates: start: 20190128
  19. REVATIO [Concomitant]
     Active Substance: SILDENAFIL CITRATE
     Indication: PRODUCT USED FOR UNKNOWN INDICATION
     Dates: start: 20190204

REACTIONS (1)
  - Death [Fatal]
